FAERS Safety Report 14076378 (Version 2)
Quarter: 2017Q4

REPORT INFORMATION
  Report Type: Spontaneous
  Country: JP (occurrence: JP)
  Receive Date: 20171011
  Receipt Date: 20171022
  Transmission Date: 20180321
  Serious: Yes (Hospitalization)
  Sender: FDA-Public Use
  Company Number: JP-DSJP-DSJ-2017-143412

PATIENT

DRUGS (2)
  1. NIVOLUMAB [Suspect]
     Active Substance: NIVOLUMAB
     Indication: LARGE CELL LUNG CANCER STAGE III
     Dosage: 180 MG, ONCE EVERY 2 WK
     Route: 065
  2. LIXIANA TABLETS [Suspect]
     Active Substance: EDOXABAN TOSYLATE
     Indication: EMBOLISM VENOUS
     Dosage: UNK
     Route: 048

REACTIONS (4)
  - Blood corticotrophin decreased [Unknown]
  - Influenza [Recovering/Resolving]
  - Hyponatraemia [Recovering/Resolving]
  - Secondary adrenocortical insufficiency [Unknown]
